FAERS Safety Report 9465897 (Version 4)
Quarter: 2015Q3

REPORT INFORMATION
  Report Type: Spontaneous
  Country: DE (occurrence: DE)
  Receive Date: 20130820
  Receipt Date: 20150825
  Transmission Date: 20151125
  Serious: Yes (Other)
  Sender: FDA-Public Use
  Company Number: DE-ASTELLAS-2013EU001428

PATIENT
  Sex: Male
  Weight: 139 kg

DRUGS (4)
  1. PROGRAF [Suspect]
     Active Substance: TACROLIMUS\TACROLIMUS ANHYDROUS
     Dosage: UNK, TWICE DAILY
     Route: 065
  2. RAPAMUNE [Suspect]
     Active Substance: SIROLIMUS
     Indication: PRODUCT USED FOR UNKNOWN INDICATION
     Dosage: UNK, UNKNOWN FREQ.
     Route: 065
  3. PROGRAF [Suspect]
     Active Substance: TACROLIMUS\TACROLIMUS ANHYDROUS
     Indication: LIVER TRANSPLANT
     Route: 065
  4. PROGRAF [Suspect]
     Active Substance: TACROLIMUS\TACROLIMUS ANHYDROUS
     Route: 065
     Dates: start: 201211

REACTIONS (13)
  - Pain threshold decreased [Unknown]
  - Loss of consciousness [Unknown]
  - Asthenia [Unknown]
  - Procedural pain [Unknown]
  - Pain [Unknown]
  - Pruritus [Recovered/Resolved]
  - Cerebrovascular accident [Unknown]
  - Ileus paralytic [Recovered/Resolved]
  - Weight increased [Unknown]
  - Blindness transient [Recovered/Resolved]
  - Coma hepatic [Recovered/Resolved]
  - Facial paresis [Unknown]
  - Memory impairment [Recovered/Resolved]
